FAERS Safety Report 5883786-9 (Version None)
Quarter: 2008Q3

REPORT INFORMATION
  Report Type: 
  Country: None (occurrence: None)
  Receive Date: 20080915
  Receipt Date: 20080904
  Transmission Date: 20090109
  Serious: Yes (Death)
  Sender: FDA-Public Use
  Company Number: A0713317A

PATIENT
  Sex: Female
  Weight: 95.5 kg

DRUGS (10)
  1. AVANDIA [Suspect]
     Dosage: 8MG PER DAY
     Route: 048
     Dates: start: 20020501, end: 20070223
  2. LUNESTA [Concomitant]
  3. ARICEPT [Concomitant]
  4. ENALAPRIL MALEATE [Concomitant]
  5. SEROQUEL [Concomitant]
     Dates: start: 20051201, end: 20070201
  6. DEPAKOTE [Concomitant]
     Dates: start: 20051201, end: 20070201
  7. ZOCOR [Concomitant]
     Dates: start: 20050101, end: 20070201
  8. PAXIL [Concomitant]
     Dates: start: 20050101, end: 20051101
  9. ATENOLOL [Concomitant]
     Dates: start: 20050101, end: 20070201
  10. EFFEXOR [Concomitant]
     Dates: start: 20050101, end: 20051101

REACTIONS (6)
  - ARTERIOSCLEROSIS CORONARY ARTERY [None]
  - DEATH [None]
  - EMOTIONAL DISORDER [None]
  - HEART INJURY [None]
  - MYOCARDIAL INFARCTION [None]
  - PAIN [None]
